FAERS Safety Report 7364560-3 (Version None)
Quarter: 2011Q1

REPORT INFORMATION
  Report Type: 
  Country: None (occurrence: None)
  Receive Date: 20110321
  Receipt Date: 20110311
  Transmission Date: 20110831
  Serious: Yes (Death)
  Sender: FDA-Public Use
  Company Number: IL-ACTELION-A-CH2007-14267

PATIENT
  Age: 72 Year
  Sex: Male

DRUGS (7)
  1. ACE INHIBITOR NOS [Concomitant]
  2. PROTON PUMP INHIBITORS [Concomitant]
  3. CYCLOPHOSPHAMIDE [Concomitant]
  4. CORTICOSTEROID NOS [Concomitant]
  5. VENTAVIS [Concomitant]
     Indication: PULMONARY ARTERIAL HYPERTENSION
  6. TRACLEER [Suspect]
     Indication: PULMONARY ARTERIAL HYPERTENSION
     Dosage: 125 MG, UNK
     Route: 048
     Dates: start: 20050101, end: 20070201
  7. COUMADIN [Concomitant]

REACTIONS (2)
  - PANCREATIC CARCINOMA [None]
  - DISEASE PROGRESSION [None]
